FAERS Safety Report 5135685-8 (Version None)
Quarter: 2006Q4

REPORT INFORMATION
  Report Type: 
  Country: None (occurrence: None)
  Receive Date: 20061024
  Receipt Date: 20061024
  Transmission Date: 20070319
  Serious: Yes (Hospitalization)
  Sender: FDA-Public Use
  Company Number: None

PATIENT
  Age: 39 Year
  Sex: Male
  Weight: 67.2 kg

DRUGS (7)
  1. RITUXIMAB [Suspect]
     Indication: CASTLEMAN'S DISEASE
     Dosage: 690 MG IV
     Route: 042
     Dates: start: 20060828
  2. DOXORUBICIN HCL [Suspect]
     Indication: CASTLEMAN'S DISEASE
     Dosage: 36.8 MG IV
     Route: 042
     Dates: start: 20060828
  3. METHADONE HCL [Concomitant]
  4. GABAPENTIN [Concomitant]
  5. KALETRA [Concomitant]
  6. TRUVADA [Concomitant]
  7. OMEPRAZOLE [Concomitant]

REACTIONS (5)
  - BACK PAIN [None]
  - BLOOD PRESSURE DECREASED [None]
  - BODY TEMPERATURE INCREASED [None]
  - INFUSION RELATED REACTION [None]
  - SINUS TACHYCARDIA [None]
